FAERS Safety Report 8723253 (Version 2)
Quarter: 2012Q4

REPORT INFORMATION
  Report Type: 
  Country: US (occurrence: US)
  Receive Date: 20120814
  Receipt Date: 20120912
  Transmission Date: 20130627
  Serious: No
  Sender: FDA-Public Use
  Company Number: US-ASTRAZENECA-2012SE55063

PATIENT
  Age: 34 Year
  Sex: Female

DRUGS (2)
  1. PULMICORT  FLEXHALER [Suspect]
     Route: 055
     Dates: start: 201203
  2. PULMICORT  FLEXHALER [Suspect]
     Dosage: 90MCG, TWO PUFFS TWO TIMES DAILY
     Route: 055

REACTIONS (3)
  - Dyspnoea [Not Recovered/Not Resolved]
  - Respiratory disorder [Not Recovered/Not Resolved]
  - Drug dose omission [Unknown]
